FAERS Safety Report 4346232-2 (Version None)
Quarter: 2004Q2

REPORT INFORMATION
  Report Type: 
  Country: None (occurrence: None)
  Receive Date: 20040416
  Receipt Date: 20040402
  Transmission Date: 20050107
  Serious: Yes (Hospitalization)
  Sender: FDA-Public Use
  Company Number: 2004-114686-NL

PATIENT
  Age: 83 Year
  Sex: Male
  Weight: 79.5 kg

DRUGS (11)
  1. TICE BCG [Suspect]
     Indication: BLADDER CANCER
     Dosage: CFU INTRAVESICAL, FULL DOSE
     Route: 043
     Dates: start: 20020814, end: 20020918
  2. TICE BCG [Suspect]
     Indication: BLADDER CANCER
     Dosage: CFU INTRAVESICAL, 1/3 DOSE
     Route: 043
     Dates: start: 20021120, end: 20021204
  3. TICE BCG [Suspect]
     Indication: BLADDER CANCER
     Dosage: CFU INTRAVESICAL, 1/3 DOSE
     Route: 043
     Dates: start: 20030212, end: 20030223
  4. TICE BCG [Suspect]
     Indication: BLADDER CANCER
     Dosage: CFU INTRAVESICAL, 1/3 DOSE
     Route: 043
     Dates: start: 20031001, end: 20031015
  5. INTRON A [Suspect]
     Indication: BLADDER CANCER
     Dosage: 50 IU WEEKLY, INTRAVESICAL
     Route: 043
     Dates: start: 20020814, end: 20020918
  6. INTRON A [Suspect]
     Indication: BLADDER CANCER
     Dosage: IU INTRAVESICAL, 3 WEEKS
     Route: 043
     Dates: start: 20021120, end: 20021204
  7. INTRON A [Suspect]
     Indication: BLADDER CANCER
     Dosage: IU  INTRAVESICAL, 3 WEEKS
     Route: 043
     Dates: start: 20030212, end: 20030226
  8. INTRON A [Suspect]
     Indication: BLADDER CANCER
     Dosage: IU INTRAVESICAL, 3 WEEKS
     Route: 043
     Dates: start: 20031001, end: 20031015
  9. SOTALOL HCL [Concomitant]
  10. LIPITOR [Concomitant]
  11. MOBIC [Concomitant]

REACTIONS (1)
  - PNEUMONIA [None]
